FAERS Safety Report 8058628-6 (Version None)
Quarter: 2012Q1

REPORT INFORMATION
  Report Type: 
  Country: None (occurrence: None)
  Receive Date: 20120120
  Receipt Date: 20120118
  Transmission Date: 20120608
  Serious: Yes (Other)
  Sender: FDA-Public Use
  Company Number: US-PFIZER INC-2012015019

PATIENT
  Sex: Female
  Weight: 96.145 kg

DRUGS (7)
  1. NORVASC [Suspect]
     Indication: HYPERTENSION
     Dosage: 10 MG, DAILY
  2. LANTUS [Concomitant]
     Indication: DIABETES MELLITUS
     Dosage: UNK
  3. ISOSORBIDE [Concomitant]
     Dosage: UNK
  4. METOPROLOL [Concomitant]
     Indication: HYPERTENSION
     Dosage: 25 MG, DAILY
  5. ARTHROTEC [Suspect]
     Indication: ARTHRITIS
     Dosage: 50 MG, 2X/DAY
     Dates: start: 20030101
  6. HUMALOG [Concomitant]
     Indication: DIABETES MELLITUS
     Dosage: UNK
  7. LOVASTATIN [Suspect]
     Dosage: UNK

REACTIONS (3)
  - EAR INFECTION [None]
  - ABDOMINAL DISCOMFORT [None]
  - PNEUMONIA [None]
